FAERS Safety Report 23636878 (Version 1)
Quarter: 2024Q1

REPORT INFORMATION
  Report Type: Spontaneous
  Country: US (occurrence: None)
  Receive Date: 20240314
  Receipt Date: 20240314
  Transmission Date: 20240409
  Serious: Yes (Death)
  Sender: FDA-Public Use
  Company Number: None

PATIENT
  Age: 82 Year
  Sex: Female
  Weight: 97.52 kg

DRUGS (31)
  1. REPATHA [Suspect]
     Active Substance: EVOLOCUMAB
     Indication: Hyperlipidaemia
     Dosage: FREQUENCY : EVERY OTHER WEEK;?
     Route: 058
     Dates: start: 20220407, end: 20240312
  2. Faslodex, ammonium lactate 12% lotion [Concomitant]
  3. Bimatoprost 0.01% [Concomitant]
  4. BIOTIN [Concomitant]
     Active Substance: BIOTIN
  5. Brimonidine-tmolol [Concomitant]
  6. CYANOCOBALAMIN [Concomitant]
     Active Substance: CYANOCOBALAMIN
  7. DENOSUMAB [Concomitant]
     Active Substance: DENOSUMAB
  8. DICLOFENAC SODIUM [Concomitant]
     Active Substance: DICLOFENAC\DICLOFENAC SODIUM
  9. Doxepin (SINEQUAN) [Concomitant]
  10. Ferrous Sulfate (IRON) [Concomitant]
  11. ATARAX [Concomitant]
     Active Substance: HYDROXYZINE HYDROCHLORIDE
  12. Irbesartan (AVAPRO) [Concomitant]
  13. Latanoprost (XALATAN) [Concomitant]
  14. ATIVAN [Concomitant]
     Active Substance: LORAZEPAM
  15. MAGNESIUM OXIDE [Concomitant]
     Active Substance: MAGNESIUM OXIDE
  16. HIPREX [Concomitant]
     Active Substance: METHENAMINE HIPPURATE
  17. MACROBID [Concomitant]
     Active Substance: NITROFURANTOIN\NITROFURANTOIN MONOHYDRATE
  18. GINGER [Concomitant]
     Active Substance: GINGER
  19. CBD cream [Concomitant]
  20. OMEGA 3 [Concomitant]
     Active Substance: CAPSAICIN
  21. ROXICODONE [Concomitant]
     Active Substance: OXYCODONE HYDROCHLORIDE
  22. MIRALAX [Concomitant]
     Active Substance: POLYETHYLENE GLYCOL 3350
  23. UROCIT-K [Concomitant]
     Active Substance: POTASSIUM CITRATE
  24. SENNA LAXATIVE [Concomitant]
     Active Substance: SENNOSIDES
  25. VESICARE [Concomitant]
     Active Substance: SOLIFENACIN SUCCINATE
  26. DETROL LA [Concomitant]
     Active Substance: TOLTERODINE TARTRATE
  27. TRIMPEX [Concomitant]
     Active Substance: TRIMETHOPRIM
  28. HERBALS\TURMERIC [Concomitant]
     Active Substance: HERBALS\TURMERIC
  29. VITAMIN D [Concomitant]
     Active Substance: VITAMIN D NOS
  30. ZOLPIDEM [Concomitant]
     Active Substance: ZOLPIDEM TARTRATE
  31. IBRANCE [Concomitant]
     Active Substance: PALBOCICLIB

REACTIONS (3)
  - Disease progression [None]
  - Metastases to liver [None]
  - Metastases to bone [None]

NARRATIVE: CASE EVENT DATE: 20240312
